FAERS Safety Report 4694761-4 (Version None)
Quarter: 2005Q2

REPORT INFORMATION
  Report Type: 
  Country: None (occurrence: None)
  Receive Date: 20050617
  Receipt Date: 20050601
  Transmission Date: 20051028
  Serious: Yes (Disabling)
  Sender: FDA-Public Use
  Company Number: ABWVP-05-0279

PATIENT
  Age: 62 Year
  Sex: Female

DRUGS (4)
  1. ABRAXANE [Suspect]
     Indication: BREAST CANCER METASTATIC
     Dosage: 500 MG (260 MG/M2, EVERY 3 WEEKS), INTRAVENOUS DRIP
     Route: 041
     Dates: start: 20050525
  2. MVI (MULTIVITAMINS) [Concomitant]
  3. ANZEMET (DOLASETRON MESILATE) [Concomitant]
  4. XANAX [Concomitant]

REACTIONS (8)
  - ACTIVITIES OF DAILY LIVING IMPAIRED [None]
  - ASTHENIA [None]
  - BONE PAIN [None]
  - FALL [None]
  - MYALGIA [None]
  - NEUTROPENIA [None]
  - PAIN [None]
  - WHITE BLOOD CELL COUNT DECREASED [None]
